FAERS Safety Report 9242393 (Version 4)
Quarter: 2013Q2

REPORT INFORMATION
  Report Type: Spontaneous
  Country: DE (occurrence: DE)
  Receive Date: 20130419
  Receipt Date: 20130620
  Transmission Date: 20140414
  Serious: Yes (Death)
  Sender: FDA-Public Use
  Company Number: DE-EISAI INC-E2007-01135-SPO-DE

PATIENT
  Age: 61 Year
  Sex: Male
  Weight: 60 kg

DRUGS (10)
  1. FYCOMPA (PERAMPANEL) [Suspect]
     Indication: EPILEPSY
     Route: 048
     Dates: start: 20130405, end: 20130411
  2. FYCOMPA (PERAMPANEL) [Suspect]
     Route: 048
     Dates: start: 20130412, end: 20130415
  3. PHENYTOIN [Concomitant]
     Indication: EPILEPSY
     Dosage: 400 MG DAILY
     Route: 048
     Dates: end: 20130415
  4. PHENOBARBITAL [Concomitant]
     Indication: EPILEPSY
     Dosage: 300 MG DAILY
     Route: 048
     Dates: end: 20130415
  5. LAMOTRIGINE [Concomitant]
     Indication: EPILEPSY
     Dosage: 125 MG DAILY
     Route: 048
     Dates: end: 20130415
  6. CLOBAZAM [Concomitant]
     Indication: EPILEPSY
     Dosage: 5-10 MG DAILY
     Route: 048
     Dates: start: 20130409, end: 20130415
  7. MIRTAZAPIN [Concomitant]
     Indication: SLEEP DISORDER
     Route: 048
     Dates: end: 20130415
  8. UNACID [Concomitant]
     Indication: INFECTION
     Route: 048
     Dates: start: 20130409, end: 20130415
  9. PANTOPRAZOL [Concomitant]
     Indication: GASTRITIS
     Route: 048
     Dates: start: 20130406, end: 20130415
  10. GRANU FINK [Concomitant]
     Indication: PROSTATIC DISORDER
     Dosage: 2 TABLETS
     Route: 048
     Dates: end: 20130415

REACTIONS (1)
  - Sudden unexplained death in epilepsy [Fatal]
